FAERS Safety Report 25656360 (Version 1)
Quarter: 2025Q3

REPORT INFORMATION
  Report Type: Spontaneous
  Country: ZA (occurrence: ZA)
  Receive Date: 20250807
  Receipt Date: 20250807
  Transmission Date: 20251021
  Serious: Yes (Other)
  Sender: PFIZER
  Company Number: ZA-PFIZER INC-PV202500094496

PATIENT
  Age: 18 Year
  Sex: Female

DRUGS (3)
  1. SULFASALAZINE [Suspect]
     Active Substance: SULFASALAZINE
     Indication: Juvenile idiopathic arthritis
     Dosage: 500 MG, 2X/DAY
     Route: 048
     Dates: start: 202303
  2. CELEBREX [Concomitant]
     Active Substance: CELECOXIB
     Indication: Juvenile idiopathic arthritis
     Dosage: 200 MG, 2X/DAY
     Dates: start: 202210
  3. METHOTREXATE [Concomitant]
     Active Substance: METHOTREXATE
     Indication: Juvenile idiopathic arthritis
     Dosage: 15 MG, WEEKLY
     Route: 048
     Dates: start: 202210

REACTIONS (6)
  - Weight bearing difficulty [Unknown]
  - Drug intolerance [Unknown]
  - Loss of therapeutic response [Unknown]
  - Joint swelling [Unknown]
  - Peripheral swelling [Unknown]
  - Pain [Unknown]
